FAERS Safety Report 15134091 (Version 1)
Quarter: 2018Q3

REPORT INFORMATION
  Report Type: Spontaneous
  Country: CN (occurrence: CN)
  Receive Date: 20180712
  Receipt Date: 20180712
  Transmission Date: 20181010
  Serious: Yes (Other)
  Sender: FDA-Public Use
  Company Number: CN-ALSI-201800431

PATIENT
  Age: 67 Year
  Sex: Female

DRUGS (2)
  1. OXYGEN. [Suspect]
     Active Substance: OXYGEN
     Indication: CHEMONUCLEOLYSIS
     Route: 024
  2. OZONE [Suspect]
     Active Substance: OZONE
     Route: 024

REACTIONS (3)
  - Off label use [Unknown]
  - Extradural abscess [Unknown]
  - Bone abscess [Unknown]
